FAERS Safety Report 25475453 (Version 1)
Quarter: 2025Q2

REPORT INFORMATION
  Report Type: Spontaneous
  Country: SE (occurrence: SE)
  Receive Date: 20250624
  Receipt Date: 20250624
  Transmission Date: 20250717
  Serious: Yes (Hospitalization)
  Sender: MYLAN
  Company Number: None

PATIENT
  Age: 63 Year
  Sex: Female

DRUGS (8)
  1. TOBRAMYCIN [Suspect]
     Active Substance: TOBRAMYCIN
     Indication: Pseudomonas infection
     Dosage: 1 DOSAGE FORM, BID, 12 HOURS,1 INHALATION X2 FOR 28 DAYS (NEBULISER SOLUTION)
     Dates: start: 20250526, end: 20250606
  2. TOBRAMYCIN [Suspect]
     Active Substance: TOBRAMYCIN
     Dosage: 1 DOSAGE FORM, BID, 12 HOURS,1 INHALATION X2 FOR 28 DAYS (NEBULISER SOLUTION)
     Route: 065
     Dates: start: 20250526, end: 20250606
  3. TOBRAMYCIN [Suspect]
     Active Substance: TOBRAMYCIN
     Dosage: 1 DOSAGE FORM, BID, 12 HOURS,1 INHALATION X2 FOR 28 DAYS (NEBULISER SOLUTION)
     Route: 065
     Dates: start: 20250526, end: 20250606
  4. TOBRAMYCIN [Suspect]
     Active Substance: TOBRAMYCIN
     Dosage: 1 DOSAGE FORM, BID, 12 HOURS,1 INHALATION X2 FOR 28 DAYS (NEBULISER SOLUTION)
     Dates: start: 20250526, end: 20250606
  5. CIPROFLOXACIN [Concomitant]
     Active Substance: CIPROFLOXACIN
  6. CIPROFLOXACIN [Concomitant]
     Active Substance: CIPROFLOXACIN
     Route: 065
  7. CIPROFLOXACIN [Concomitant]
     Active Substance: CIPROFLOXACIN
     Route: 065
  8. CIPROFLOXACIN [Concomitant]
     Active Substance: CIPROFLOXACIN

REACTIONS (2)
  - Acute kidney injury [Unknown]
  - Tubulointerstitial nephritis [Recovering/Resolving]

NARRATIVE: CASE EVENT DATE: 20250605
